FAERS Safety Report 13711406 (Version 1)
Quarter: 2017Q3

REPORT INFORMATION
  Report Type: Spontaneous
  Country: PH (occurrence: PH)
  Receive Date: 20170703
  Receipt Date: 20170703
  Transmission Date: 20171127
  Serious: Yes (Death, Other)
  Sender: FDA-Public Use
  Company Number: PH-OTSUKA-2017_011544

PATIENT
  Sex: Male

DRUGS (1)
  1. PLETAAL [Suspect]
     Active Substance: CILOSTAZOL
     Indication: ANTICOAGULANT THERAPY
     Dosage: 100 MG, BID
     Route: 048
     Dates: start: 2015, end: 201611

REACTIONS (3)
  - Hepatic neoplasm [Fatal]
  - Asthenia [Unknown]
  - Cardiac arrest [Fatal]
